FAERS Safety Report 6356322-0 (Version None)
Quarter: 2009Q3

REPORT INFORMATION
  Report Type: 
  Country: None (occurrence: None)
  Receive Date: 20090915
  Receipt Date: 20090904
  Transmission Date: 20100115
  Serious: Yes (Hospitalization, Other)
  Sender: FDA-Public Use
  Company Number: US-AVENTIS-200917959US

PATIENT
  Sex: Female

DRUGS (4)
  1. LANTUS [Suspect]
     Route: 058
     Dates: start: 20070101
  2. PLAVIX [Concomitant]
     Dosage: DOSE: UNK
     Dates: start: 20090801
  3. METFORMIN HCL [Concomitant]
     Dosage: DOSE: UNK
  4. GLYBURIDE [Concomitant]
     Dosage: DOSE: UNK

REACTIONS (3)
  - CARDIAC MURMUR [None]
  - CORONARY ARTERY DISEASE [None]
  - PALPITATIONS [None]
